FAERS Safety Report 9205477 (Version 2)
Quarter: 2013Q2

REPORT INFORMATION
  Report Type: Spontaneous
  Country: US (occurrence: US)
  Receive Date: 20130403
  Receipt Date: 20130419
  Transmission Date: 20140414
  Serious: Yes (Hospitalization)
  Sender: FDA-Public Use
  Company Number: US-BIOGENIDEC-2013BI029223

PATIENT
  Age: 65 Year
  Sex: Female

DRUGS (6)
  1. TYSABRI [Suspect]
     Indication: MULTIPLE SCLEROSIS
     Route: 042
     Dates: start: 20080611
  2. SERTRALINE [Concomitant]
     Route: 048
     Dates: start: 20120507
  3. AMITIZA [Concomitant]
     Indication: CONSTIPATION
     Route: 048
     Dates: start: 20120507
  4. VITAMIN D [Concomitant]
     Route: 048
     Dates: start: 20120507
  5. VENLAFAXINE [Concomitant]
     Route: 048
     Dates: start: 20120507
  6. FORTICAL [Concomitant]
     Indication: OSTEOPOROSIS
     Route: 045
     Dates: start: 20120507

REACTIONS (3)
  - Fungal infection [Recovered/Resolved]
  - Urinary tract infection [Recovered/Resolved]
  - Cellulitis [Recovered/Resolved]
